FAERS Safety Report 7356177-1 (Version None)
Quarter: 2011Q1

REPORT INFORMATION
  Report Type: 
  Country: None (occurrence: None)
  Receive Date: 20110316
  Receipt Date: 20110307
  Transmission Date: 20110831
  Serious: Yes (Other)
  Sender: FDA-Public Use
  Company Number: CA-PFIZER INC-2011049444

PATIENT
  Sex: Male
  Weight: 73.016 kg

DRUGS (1)
  1. CHAMPIX [Suspect]
     Dosage: UNK
     Dates: start: 20110201

REACTIONS (8)
  - ABNORMAL DREAMS [None]
  - DECREASED APPETITE [None]
  - ANGER [None]
  - MOOD ALTERED [None]
  - NAUSEA [None]
  - ASOCIAL BEHAVIOUR [None]
  - VOMITING [None]
  - WEIGHT DECREASED [None]
